FAERS Safety Report 5511178-0 (Version None)
Quarter: 2007Q4

REPORT INFORMATION
  Report Type: 
  Country: None (occurrence: None)
  Receive Date: 20071109
  Receipt Date: 20071030
  Transmission Date: 20080405
  Serious: Yes (Hospitalization)
  Sender: FDA-Public Use
  Company Number: ES-ELI_LILLY_AND_COMPANY-ES200710007477

PATIENT
  Age: 56 Year
  Sex: Female

DRUGS (4)
  1. FORTEO [Suspect]
     Indication: OSTEOPOROSIS
     Dosage: 20 UG, UNK
     Route: 058
     Dates: start: 20061201, end: 20071024
  2. ANALGESICS [Concomitant]
     Indication: PAIN
  3. DRUGS FOR TREATMENT OF BONE DISEASES [Concomitant]
     Indication: OSTEOPOROSIS
  4. THYROID THERAPY [Concomitant]
     Indication: THYROID DISORDER

REACTIONS (5)
  - HAEMATOCHEZIA [None]
  - HIATUS HERNIA [None]
  - INTESTINAL POLYP [None]
  - LIVER ABSCESS [None]
  - MUCOUS STOOLS [None]
